FAERS Safety Report 8817283 (Version 1)
Quarter: 2012Q4

REPORT INFORMATION
  Report Type: 
  Country: US (occurrence: US)
  Receive Date: 20121001
  Receipt Date: 20121001
  Transmission Date: 20130627
  Serious: Yes (Hospitalization)
  Sender: FDA-Public Use
  Company Number: US-GENZYME-LEUK-1000304

PATIENT
  Sex: Male

DRUGS (2)
  1. LEUKINE [Suspect]
     Indication: ALVEOLAR PROTEINOSIS
     Dosage: 250 mcg, bid through small volume nebulizer with compressor
     Route: 065
  2. LEUKINE [Suspect]
     Dosage: 250 mg, bid
     Route: 065
     Dates: start: 201209

REACTIONS (2)
  - Bronchoalveolar lavage [Unknown]
  - Off label use [Unknown]
